FAERS Safety Report 6922160-0 (Version None)
Quarter: 2010Q3

REPORT INFORMATION
  Report Type: 
  Country: None (occurrence: None)
  Receive Date: 20100812
  Receipt Date: 20100803
  Transmission Date: 20110219
  Serious: Yes (Life-Threatening, Hospitalization, Disabling)
  Sender: FDA-Public Use
  Company Number: GB-MERCK-1008GBR00014

PATIENT
  Age: 73 Year
  Sex: Female
  Weight: 105 kg

DRUGS (2)
  1. INVANZ [Suspect]
     Indication: KLEBSIELLA INFECTION
     Route: 042
  2. INVANZ [Suspect]
     Indication: OSTEOMYELITIS
     Route: 042

REACTIONS (4)
  - APHASIA [None]
  - FACIAL PARESIS [None]
  - MUSCULAR WEAKNESS [None]
  - STATUS EPILEPTICUS [None]
